FAERS Safety Report 5890712 (Version 12)
Quarter: 2013Q1

REPORT INFORMATION
  Report Type: Spontaneous
  Country: US (occurrence: US)
  Receive Date: 20051004
  Receipt Date: 20130116
  Transmission Date: 20140127
  Serious: Yes (Death, Hospitalization, Other)
  Sender: FDA-Public Use
  Company Number: PHEH2005US10681

PATIENT
  Age: 46 Year
  Sex: Female
  Weight: 50.34 kg

DRUGS (26)
  1. ZOMETA [Suspect]
     Indication: METASTASES TO BONE
     Dosage: 4 MG, QMO
     Route: 042
     Dates: start: 200310, end: 20050315
  2. PROZAC [Concomitant]
  3. TAXOL [Concomitant]
  4. DECADRON [Concomitant]
  5. HERCEPTIN ^ROCHE^ [Concomitant]
  6. BENADRYL ^PFIZER WARNER-LAMBERT^ [Concomitant]
  7. TAGAMET [Concomitant]
  8. K-LOR [Concomitant]
  9. COUMADIN ^ENDO^ [Concomitant]
  10. TEMAZEPAM [Concomitant]
  11. PHENERGAN [Concomitant]
  12. URO-MAG [Concomitant]
     Indication: BLOOD MAGNESIUM DECREASED
     Dates: start: 200405
  13. BENTYL [Concomitant]
  14. MORPHINE SULFATE [Concomitant]
     Indication: PAIN MANAGEMENT
  15. LOMOTIL [Concomitant]
  16. STRESS FORMULA MULTI B COMPLEX W/C 500 [Concomitant]
  17. CALCIUM WITH VITAMIN D [Concomitant]
  18. LAXATIVES [Concomitant]
  19. STOOL SOFTENER [Concomitant]
  20. SORBITOL [Concomitant]
  21. NAVELBINE ^GLAXO WELLCOME^ [Concomitant]
  22. XANAX [Concomitant]
  23. FEMARA [Concomitant]
  24. TAMOXIFEN [Concomitant]
     Route: 048
     Dates: start: 1995
  25. AMITRIPTYLINE [Concomitant]
  26. XELODA [Concomitant]
     Dates: start: 20040420, end: 20050317

REACTIONS (43)
  - Death [Fatal]
  - Orthostatic hypotension [Unknown]
  - Headache [Unknown]
  - Nausea [Unknown]
  - Asthenia [Unknown]
  - Dizziness [Unknown]
  - Delirium [Unknown]
  - Vomiting [Recovered/Resolved]
  - Blood magnesium decreased [Unknown]
  - Diarrhoea [Recovered/Resolved]
  - Osteonecrosis of jaw [Unknown]
  - Osteomyelitis [Unknown]
  - Soft tissue inflammation [Unknown]
  - Pain in jaw [Unknown]
  - Gingival erythema [Unknown]
  - Oral disorder [Unknown]
  - Musculoskeletal pain [Unknown]
  - Malignant neoplasm progression [Not Recovered/Not Resolved]
  - Small intestinal obstruction [Unknown]
  - Osteopenia [Unknown]
  - Ileus [Unknown]
  - Chest pain [Unknown]
  - Back pain [Unknown]
  - Pneumonia [Unknown]
  - Depression [Unknown]
  - Tachycardia [Unknown]
  - Hypoxia [Unknown]
  - Constipation [Unknown]
  - Metastases to peritoneum [Unknown]
  - Metastases to lung [Unknown]
  - Ascites [Unknown]
  - Emphysema [Unknown]
  - Chronic obstructive pulmonary disease [Unknown]
  - Bronchiectasis [Unknown]
  - Aortic calcification [Unknown]
  - Pleural effusion [Unknown]
  - Pulmonary embolism [Unknown]
  - Urinary tract infection [Unknown]
  - Abdominal pain [Unknown]
  - Pulmonary fibrosis [Unknown]
  - Tricuspid valve incompetence [Unknown]
  - Pulmonary valve incompetence [Unknown]
  - Hepatomegaly [Unknown]
